FAERS Safety Report 6130649-X (Version None)
Quarter: 2009Q1

REPORT INFORMATION
  Report Type: 
  Country: None (occurrence: None)
  Receive Date: 20090323
  Receipt Date: 20090306
  Transmission Date: 20090719
  Serious: Yes (Hospitalization)
  Sender: FDA-Public Use
  Company Number: 8044048

PATIENT
  Age: 63 Year
  Sex: Male

DRUGS (2)
  1. KEPPRA [Suspect]
     Indication: EPILEPSY
     Dates: start: 20080201, end: 20081101
  2. KEPPRA [Suspect]
     Indication: EPILEPSY
     Dates: start: 20090101, end: 20090211

REACTIONS (4)
  - ANAEMIA [None]
  - EPILEPSY [None]
  - LUNG NEOPLASM MALIGNANT [None]
  - THROMBOCYTOPENIA [None]
